FAERS Safety Report 6762947-0 (Version None)
Quarter: 2010Q2

REPORT INFORMATION
  Report Type: 
  Country: None (occurrence: None)
  Receive Date: 20100608
  Receipt Date: 20100608
  Transmission Date: 20101027
  Serious: No
  Sender: FDA-Public Use
  Company Number: None

PATIENT
  Age: 58 Year
  Sex: Female
  Weight: 68.0396 kg

DRUGS (1)
  1. CITALOPRAM HYDROBROMIDE [Suspect]
     Indication: DEPRESSION
     Dosage: 30 MG ONCE PER DAY PO
     Route: 048
     Dates: start: 20100515, end: 20100605

REACTIONS (4)
  - BLOOD GLUCOSE DECREASED [None]
  - HEADACHE [None]
  - PRODUCT MEASURED POTENCY ISSUE [None]
  - PRODUCT SUBSTITUTION ISSUE [None]
